FAERS Safety Report 17752920 (Version 2)
Quarter: 2021Q2

REPORT INFORMATION
  Report Type: Spontaneous
  Country: US (occurrence: US)
  Receive Date: 20200506
  Receipt Date: 20210505
  Transmission Date: 20210716
  Serious: No
  Sender: FDA-Public Use
  Company Number: US-ROCHE-2384489

PATIENT
  Sex: Male

DRUGS (6)
  1. XARELTO [Concomitant]
     Active Substance: RIVAROXABAN
  2. HYDROCODONE [Concomitant]
     Active Substance: HYDROCODONE
     Dosage: 5?325 MG
  3. DOCUSATE SODIUM. [Concomitant]
     Active Substance: DOCUSATE SODIUM
  4. POLYETHYLENE [Concomitant]
     Active Substance: HIGH DENSITY POLYETHYLENE
  5. PREDNISONE. [Concomitant]
     Active Substance: PREDNISONE
  6. ESBRIET [Suspect]
     Active Substance: PIRFENIDONE
     Indication: IDIOPATHIC PULMONARY FIBROSIS
     Dosage: TAKE 1 TABLET BY MOUTH THREE TIMES A DAY WITH MEALS:ONGOING:YES
     Route: 048
     Dates: start: 20171117

REACTIONS (7)
  - Nausea [Not Recovered/Not Resolved]
  - Dyspnoea [Not Recovered/Not Resolved]
  - Weight decreased [Not Recovered/Not Resolved]
  - Fatigue [Not Recovered/Not Resolved]
  - Photosensitivity reaction [Not Recovered/Not Resolved]
  - Productive cough [Not Recovered/Not Resolved]
  - Decreased appetite [Not Recovered/Not Resolved]
